FAERS Safety Report 11212106 (Version 1)
Quarter: 2015Q2

REPORT INFORMATION
  Report Type: Spontaneous
  Country: US (occurrence: None)
  Receive Date: 20150622
  Receipt Date: 20150622
  Transmission Date: 20150821
  Serious: No
  Sender: FDA-Public Use
  Company Number: None

PATIENT
  Age: 58 Year
  Sex: Male
  Weight: 86.64 kg

DRUGS (11)
  1. MODAFINIL. [Suspect]
     Active Substance: MODAFINIL
     Indication: POOR QUALITY SLEEP
     Route: 048
     Dates: start: 20150407, end: 20150414
  2. ASPIRIN. [Concomitant]
     Active Substance: ASPIRIN
  3. PRILOSEC [Concomitant]
     Active Substance: OMEPRAZOLE MAGNESIUM
  4. REQUIP [Concomitant]
     Active Substance: ROPINIROLE HYDROCHLORIDE
  5. CYMBALTA [Concomitant]
     Active Substance: DULOXETINE HYDROCHLORIDE
  6. NEURONTIN [Concomitant]
     Active Substance: GABAPENTIN
  7. CELEBREX [Concomitant]
     Active Substance: CELECOXIB
  8. TOPAMAX [Concomitant]
     Active Substance: TOPIRAMATE
  9. LOVAZA [Concomitant]
     Active Substance: OMEGA-3-ACID ETHYL ESTERS
  10. ABILIFY [Concomitant]
     Active Substance: ARIPIPRAZOLE
  11. KLONOPIN [Concomitant]
     Active Substance: CLONAZEPAM

REACTIONS (1)
  - Petechiae [None]

NARRATIVE: CASE EVENT DATE: 20150507
